FAERS Safety Report 14706184 (Version 1)
Quarter: 2018Q2

REPORT INFORMATION
  Report Type: Spontaneous
  Country: IT (occurrence: IT)
  Receive Date: 20180402
  Receipt Date: 20180402
  Transmission Date: 20180711
  Serious: No
  Sender: FDA-Public Use
  Company Number: IT-PIERREL PHARMA S.P.A.-2017PIR00011

PATIENT
  Sex: Female

DRUGS (1)
  1. ARTICAINE 4% WITH ADRENALINE 1:100,000 [Suspect]
     Active Substance: ARTICAINE\EPINEPHRINE
     Dosage: UNK
     Route: 004

REACTIONS (2)
  - Hypersensitivity [Unknown]
  - Oedema [Unknown]

NARRATIVE: CASE EVENT DATE: 20170220
